FAERS Safety Report 21812288 (Version 1)
Quarter: 2023Q1

REPORT INFORMATION
  Report Type: Spontaneous
  Country: US (occurrence: None)
  Receive Date: 20230103
  Receipt Date: 20230103
  Transmission Date: 20230418
  Serious: Yes (Hospitalization)
  Sender: FDA-Public Use
  Company Number: None

PATIENT
  Age: 66 Year
  Sex: Female
  Weight: 77.11 kg

DRUGS (9)
  1. IBRANCE [Suspect]
     Active Substance: PALBOCICLIB
     Indication: Breast cancer female
     Dosage: OTHER FREQUENCY : 21D ON 7D OFF;?
     Route: 048
  2. ANASTROZOLE [Concomitant]
     Active Substance: ANASTROZOLE
  3. DIALYVITE VITAMIN D3 [Concomitant]
  4. ESSCITALOPRAM [Concomitant]
  5. LEVOTHYROXINE [Concomitant]
     Active Substance: LEVOTHYROXINE
  6. MELATONIN [Concomitant]
     Active Substance: MELATONIN
  7. MONTELUKAST [Concomitant]
     Active Substance: MONTELUKAST SODIUM
  8. PROAIR HFA [Concomitant]
     Active Substance: ALBUTEROL SULFATE
  9. SENNA PLUS [Concomitant]
     Active Substance: DOCUSATE SODIUM\SENNOSIDES\SENNOSIDES A AND B

REACTIONS (2)
  - COVID-19 [None]
  - Therapy interrupted [None]
